FAERS Safety Report 6174082-3 (Version None)
Quarter: 2009Q2

REPORT INFORMATION
  Report Type: 
  Country: None (occurrence: None)
  Receive Date: 20090430
  Receipt Date: 20080313
  Transmission Date: 20091009
  Serious: No
  Sender: FDA-Public Use
  Company Number: US-ASTRAZENECA-2008UW05107

PATIENT
  Age: 27552 Day
  Sex: Female
  Weight: 60.8 kg

DRUGS (5)
  1. NEXIUM [Suspect]
     Indication: GASTROOESOPHAGEAL REFLUX DISEASE
     Route: 048
     Dates: start: 20080307
  2. AMLODIPINE [Concomitant]
  3. CRESTOR [Concomitant]
     Route: 048
  4. SINGULAIR [Concomitant]
  5. TIMOLOL MALEATE [Concomitant]

REACTIONS (1)
  - HAEMATOCHEZIA [None]
